FAERS Safety Report 15455565 (Version 2)
Quarter: 2019Q1

REPORT INFORMATION
  Report Type: Spontaneous
  Country: DE (occurrence: DE)
  Receive Date: 20181002
  Receipt Date: 20190123
  Transmission Date: 20190417
  Serious: Yes (Death, Other)
  Sender: FDA-Public Use
  Company Number: DE-ASTRAZENECA-2018SF27590

PATIENT
  Age: 76 Year
  Sex: Female

DRUGS (4)
  1. PALBOCICLIB [Suspect]
     Active Substance: PALBOCICLIB
     Indication: BREAST CANCER METASTATIC
     Route: 048
     Dates: start: 201611
  2. DENOSUMAB [Suspect]
     Active Substance: DENOSUMAB
     Indication: BREAST CANCER METASTATIC
     Dosage: UNK
     Route: 065
  3. FASLODEX [Suspect]
     Active Substance: FULVESTRANT
     Indication: BREAST CANCER METASTATIC
     Dosage: UNK
     Route: 030
  4. PALBOCICLIB [Suspect]
     Active Substance: PALBOCICLIB
     Indication: BREAST CANCER METASTATIC
     Route: 048

REACTIONS (8)
  - Confusional state [Unknown]
  - Anaemia [Unknown]
  - Chest pain [Unknown]
  - Fatigue [Recovering/Resolving]
  - Headache [Unknown]
  - Dizziness [Unknown]
  - Neoplasm progression [Unknown]
  - Neutropenia [Unknown]

NARRATIVE: CASE EVENT DATE: 201807
